FAERS Safety Report 16723660 (Version 1)
Quarter: 2019Q3

REPORT INFORMATION
  Report Type: Spontaneous
  Country: HK (occurrence: HK)
  Receive Date: 20190821
  Receipt Date: 20190821
  Transmission Date: 20191005
  Serious: Yes (Other)
  Sender: FDA-Public Use
  Company Number: HK-ASTRAZENECA-2019SF16032

PATIENT
  Sex: Female

DRUGS (3)
  1. OLAPARIB. [Suspect]
     Active Substance: OLAPARIB
     Route: 048
  2. OLAPARIB. [Suspect]
     Active Substance: OLAPARIB
     Route: 048
  3. OLAPARIB. [Suspect]
     Active Substance: OLAPARIB
     Route: 048

REACTIONS (4)
  - Dizziness [Unknown]
  - Pancytopenia [Unknown]
  - Fatigue [Unknown]
  - Anaemia [Unknown]
